FAERS Safety Report 8958580 (Version 1)
Quarter: 2012Q4

REPORT INFORMATION
  Report Type: Spontaneous
  Country: US (occurrence: None)
  Receive Date: 20121203
  Receipt Date: 20121203
  Transmission Date: 20130627
  Serious: Yes (Hospitalization, Other)
  Sender: FDA-Public Use
  Company Number: JPI-P-026452

PATIENT
  Age: 44 Year
  Sex: Male
  Weight: 99.79 kg

DRUGS (5)
  1. XYREM (500 MILLIGRAM/MILLILITERS, SOLUTION) (SODIUM OXYBATE) [Suspect]
     Route: 048
     Dates: start: 20050104
  2. XYREM (500 MILLIGRAM/MILLILITERS, SOLUTION) (SODIUM OXYBATE) [Suspect]
     Route: 048
     Dates: start: 20050104
  3. XYREM (500 MILLIGRAM/MILLILITERS, SOLUTION) (SODIUM OXYBATE) [Suspect]
     Dosage: 6 gm (3 gm, 2 in 1 D), oral
     Route: 048
  4. XYREM (500 MILLIGRAM/MILLILITERS, SOLUTION) (SODIUM OXYBATE) [Suspect]
     Dosage: 6 gm (3 gm, 2 in 1 D), oral
     Route: 048
  5. MODAFINIL [Concomitant]

REACTIONS (5)
  - Pulmonary embolism [None]
  - Thrombosis [None]
  - Rhabdomyolysis [None]
  - Left ventricular hypertrophy [None]
  - Vitamin D deficiency [None]
